FAERS Safety Report 22124194 (Version 2)
Quarter: 2023Q1

REPORT INFORMATION
  Report Type: Spontaneous
  Country: US (occurrence: US)
  Receive Date: 20230322
  Receipt Date: 20230330
  Transmission Date: 20230417
  Serious: No
  Sender: FDA-Public Use
  Company Number: US-GSK-US2023AMR043162

PATIENT
  Age: 61 Year
  Sex: Female

DRUGS (2)
  1. ZEJULA [Suspect]
     Active Substance: NIRAPARIB
     Indication: Ovarian cancer
     Dosage: 300 MG
     Dates: start: 20230307, end: 20230319
  2. ZEJULA [Suspect]
     Active Substance: NIRAPARIB
     Dosage: 100 MG, QD
     Dates: start: 20230322, end: 20230327

REACTIONS (10)
  - Influenza like illness [Unknown]
  - Malaise [Unknown]
  - Fatigue [Unknown]
  - Pain [Unknown]
  - Constipation [Unknown]
  - Nausea [Unknown]
  - Blood pressure increased [Unknown]
  - Feeling abnormal [Unknown]
  - Drug intolerance [Unknown]
  - Depression [Unknown]

NARRATIVE: CASE EVENT DATE: 20230301
